FAERS Safety Report 9805841 (Version 3)
Quarter: 2014Q2

REPORT INFORMATION
  Report Type: Report from Study
  Country: JP (occurrence: JP)
  Receive Date: 20140109
  Receipt Date: 20140403
  Transmission Date: 20141212
  Serious: Yes (Death, Other)
  Sender: FDA-Public Use
  Company Number: PHHY2014JP001857

PATIENT
  Age: 36 Year
  Sex: Female

DRUGS (9)
  1. LEPONEX / CLOZARIL [Suspect]
     Indication: SCHIZOPHRENIA
     Dosage: 12.5 MG, DAILY
     Route: 048
     Dates: start: 20131203, end: 20131203
  2. LEPONEX / CLOZARIL [Suspect]
     Indication: SCHIZOPHRENIA, PARANOID TYPE
     Dosage: 25 MG
     Route: 048
     Dates: start: 20131204, end: 20131207
  3. LEPONEX / CLOZARIL [Suspect]
     Dosage: 50 MG, UNK
     Route: 048
     Dates: start: 20131208, end: 20131217
  4. LEPONEX / CLOZARIL [Suspect]
     Dosage: 75 MG, UNK
     Route: 048
     Dates: start: 20131218, end: 20131224
  5. LEPONEX / CLOZARIL [Suspect]
     Dosage: 100 MG, UNK
     Route: 048
     Dates: start: 20131225
  6. OLANZAPINE [Concomitant]
     Indication: SCHIZOPHRENIA, PARANOID TYPE
     Dosage: 10 MG, UNK
     Route: 048
     Dates: start: 20131219
  7. OLANZAPINE [Concomitant]
     Dosage: 5 MG, UNK
     Route: 048
  8. BLONANSERIN [Concomitant]
     Indication: SCHIZOPHRENIA, PARANOID TYPE
     Dosage: 12 MG, UNK
     Route: 048
     Dates: start: 20131226
  9. MAGNESIUM OXIDE [Concomitant]
     Indication: CONSTIPATION
     Dosage: 1999.2 MG, UNK
     Route: 048
     Dates: start: 20131228

REACTIONS (5)
  - Completed suicide [Fatal]
  - Monocyte count increased [Unknown]
  - Blood pressure decreased [Unknown]
  - Heart rate increased [Unknown]
  - Hyperglycaemia [Unknown]
